FAERS Safety Report 4554856-2 (Version None)
Quarter: 2005Q1

REPORT INFORMATION
  Report Type: 
  Country: None (occurrence: None)
  Receive Date: 20050114
  Receipt Date: 20030721
  Transmission Date: 20050727
  Serious: Yes (Death)
  Sender: FDA-Public Use
  Company Number: GXKR2003GB00446

PATIENT
  Age: 59 Year
  Sex: Female

DRUGS (2)
  1. WARFARIN (NGX) (WARFARIN) [Suspect]
     Indication: DEEP VEIN THROMBOSIS
  2. CARBOPLATIN [Suspect]
     Indication: OVARIAN CANCER

REACTIONS (19)
  - ARTERIAL THROMBOSIS [None]
  - CARDIAC ARREST [None]
  - CARDIOMEGALY [None]
  - DEEP VEIN THROMBOSIS [None]
  - FLUID OVERLOAD [None]
  - GLOMERULOSCLEROSIS [None]
  - HAEMODIALYSIS [None]
  - HAEMOLYTIC URAEMIC SYNDROME [None]
  - HEPATIC CONGESTION [None]
  - HYPERGLYCAEMIA [None]
  - HYPERTROPHY [None]
  - INTERNATIONAL NORMALISED RATIO INCREASED [None]
  - MELAENA [None]
  - OLIGURIA [None]
  - POSTOPERATIVE THROMBOSIS [None]
  - PULMONARY CONGESTION [None]
  - PULMONARY HAEMORRHAGE [None]
  - SYSTEMIC SCLEROSIS [None]
  - THROMBOTIC MICROANGIOPATHY [None]
